FAERS Safety Report 9412488 (Version 2)
Quarter: 2013Q3

REPORT INFORMATION
  Report Type: Report from Study
  Country: JP (occurrence: JP)
  Receive Date: 20130722
  Receipt Date: 20130926
  Transmission Date: 20140515
  Serious: Yes (Hospitalization, Disabling)
  Sender: FDA-Public Use
  Company Number: JP-AMGEN-JPNCT2013050857

PATIENT
  Age: 84 Year
  Sex: Male
  Weight: 61 kg

DRUGS (26)
  1. DARBEPOETIN ALFA [Suspect]
     Indication: NEPHROGENIC ANAEMIA
     Dosage: 30 MUG, QD
     Route: 040
     Dates: start: 20110304, end: 20110304
  2. DARBEPOETIN ALFA [Suspect]
     Dosage: 60 MUG, QD
     Route: 040
     Dates: start: 20110405, end: 20110405
  3. DARBEPOETIN ALFA [Suspect]
     Dosage: 60 MUG, QD
     Route: 040
     Dates: start: 20110510, end: 20110510
  4. DARBEPOETIN ALFA [Suspect]
     Dosage: 60 MUG, QD
     Route: 040
     Dates: start: 20110614, end: 20110614
  5. DARBEPOETIN ALFA [Suspect]
     Dosage: 60 MUG, QD
     Route: 040
     Dates: start: 20110719, end: 20110719
  6. DARBEPOETIN ALFA [Suspect]
     Dosage: 60 MUG, Q4WK
     Route: 040
     Dates: start: 20110823, end: 20110920
  7. DARBEPOETIN ALFA [Suspect]
     Dosage: 60 MUG, Q2WK
     Route: 040
     Dates: start: 20111004, end: 20120404
  8. DARBEPOETIN ALFA [Suspect]
     Dosage: 60 MUG, Q3WK
     Route: 040
     Dates: start: 20120426, end: 20120517
  9. DARBEPOETIN ALFA [Suspect]
     Dosage: 60 MUG, Q2WK
     Route: 040
     Dates: start: 20120531, end: 20120614
  10. DARBEPOETIN ALFA [Suspect]
     Dosage: 60 MUG, Q2WK
     Route: 040
     Dates: start: 20120705, end: 20120719
  11. DARBEPOETIN ALFA [Suspect]
     Dosage: 60 MUG, Q3WK
     Route: 040
     Dates: start: 20120809, end: 20120830
  12. DARBEPOETIN ALFA [Suspect]
     Dosage: 60 MUG, Q2WK
     Route: 040
     Dates: start: 20120913, end: 20120927
  13. DARBEPOETIN ALFA [Suspect]
     Dosage: 60 MUG, Q2WK
     Route: 040
     Dates: start: 20121018, end: 20121101
  14. DARBEPOETIN ALFA [Suspect]
     Dosage: 60 MUG, Q2WK
     Route: 040
     Dates: start: 20121122, end: 20121220
  15. TAKEPRON [Concomitant]
     Dosage: UNK
     Route: 048
  16. URINORM [Concomitant]
     Dosage: UNK
     Route: 048
  17. CRESTOR [Concomitant]
     Dosage: UNK
     Route: 048
  18. PREDONINE [Concomitant]
     Dosage: UNK
     Route: 048
  19. DIOVAN [Concomitant]
     Dosage: UNK
     Route: 048
  20. BAYASPIRIN [Concomitant]
     Dosage: UNK
     Route: 048
  21. LASIX [Concomitant]
     Indication: NEPHROSCLEROSIS
     Dosage: UNK
     Route: 048
  22. FLUITRAN [Concomitant]
     Indication: NEPHROSCLEROSIS
     Dosage: UNK
     Route: 048
  23. EPADEL [Concomitant]
     Dosage: UNK
     Route: 048
  24. FOSAMAC [Concomitant]
     Dosage: 5 MG, UNK
     Route: 048
  25. SENNOSIDE [Concomitant]
     Dosage: UNK
     Route: 048
  26. FEBURIC [Concomitant]
     Dosage: UNK
     Route: 048

REACTIONS (1)
  - Peripheral arterial occlusive disease [Not Recovered/Not Resolved]
